FAERS Safety Report 25398885 (Version 2)
Quarter: 2025Q3

REPORT INFORMATION
  Report Type: Spontaneous
  Country: JP (occurrence: JP)
  Receive Date: 20250604
  Receipt Date: 20250810
  Transmission Date: 20251021
  Serious: Yes (Hospitalization, Other)
  Sender: ALEXION PHARMACEUTICALS
  Company Number: JP-ASTRAZENECA-250050914_032420_P_1

PATIENT
  Age: 75 Year
  Sex: Male
  Weight: 61 kg

DRUGS (13)
  1. TEZSPIRE [Suspect]
     Active Substance: TEZEPELUMAB-EKKO
     Indication: Asthma
  2. TEZSPIRE [Suspect]
     Active Substance: TEZEPELUMAB-EKKO
  3. SALMETEROL [Concomitant]
     Active Substance: SALMETEROL
  4. MONTELUKAST SODIUM [Concomitant]
     Active Substance: MONTELUKAST SODIUM
     Route: 065
  5. ALBUTEROL SULFATE [Concomitant]
     Active Substance: ALBUTEROL SULFATE
  6. CANDESARTAN CILEXETIL [Concomitant]
     Active Substance: CANDESARTAN CILEXETIL
     Route: 065
  7. SILODOSIN [Concomitant]
     Active Substance: SILODOSIN
     Route: 065
  8. TADALAFIL [Concomitant]
     Active Substance: TADALAFIL
     Route: 065
  9. DUTASTERIDE [Concomitant]
     Active Substance: DUTASTERIDE
     Route: 065
  10. LATANOPROST [Concomitant]
     Active Substance: LATANOPROST
  11. OMALIZUMAB [Concomitant]
     Active Substance: OMALIZUMAB
     Indication: Asthma
     Route: 065
  12. BETAMETHASONE [Concomitant]
     Active Substance: BETAMETHASONE
  13. TRIAMCINOLONE [Concomitant]
     Active Substance: TRIAMCINOLONE

REACTIONS (2)
  - Dacryocystitis [Recovered/Resolved]
  - Asthma [Recovered/Resolved]

NARRATIVE: CASE EVENT DATE: 20250201
